FAERS Safety Report 9699236 (Version 3)
Quarter: 2015Q3

REPORT INFORMATION
  Report Type: Spontaneous
  Country: US (occurrence: US)
  Receive Date: 20131120
  Receipt Date: 20150803
  Transmission Date: 20151125
  Serious: No
  Sender: FDA-Public Use
  Company Number: US-GILEAD-2008-0014934

PATIENT
  Sex: Female

DRUGS (11)
  1. COZAAR [Concomitant]
     Active Substance: LOSARTAN POTASSIUM
     Dates: start: 20060614
  2. DETROL LA [Concomitant]
     Active Substance: TOLTERODINE TARTRATE
     Dates: start: 20060614
  3. COMBIVENT [Concomitant]
     Active Substance: ALBUTEROL SULFATE\IPRATROPIUM BROMIDE
     Route: 055
     Dates: start: 20070917
  4. PARACETAMOL/HYDROCODONE BITARTRATE [Concomitant]
     Dosage: PRN
     Dates: start: 20060614
  5. NEURONTIN [Concomitant]
     Active Substance: GABAPENTIN
     Dates: start: 20070727
  6. LETAIRIS [Suspect]
     Active Substance: AMBRISENTAN
     Indication: PULMONARY ARTERIAL HYPERTENSION
     Dates: start: 20070914, end: 20080110
  7. VENTAVIS [Concomitant]
     Active Substance: ILOPROST
     Dosage: 6 - 8 TREATMENTS/DAY
     Dates: start: 20070718
  8. LASIX [Concomitant]
     Active Substance: FUROSEMIDE
  9. LASIX [Concomitant]
     Active Substance: FUROSEMIDE
     Dosage: 40 MG IN PM
     Dates: start: 20080110
  10. LIPITOR [Concomitant]
     Active Substance: ATORVASTATIN CALCIUM
     Dates: start: 20070410
  11. LASIX [Concomitant]
     Active Substance: FUROSEMIDE
     Dosage: 80 MG IN AM
     Dates: start: 20080110

REACTIONS (1)
  - Oedema peripheral [None]

NARRATIVE: CASE EVENT DATE: 20071019
